FAERS Safety Report 23088936 (Version 1)
Quarter: 2023Q4

REPORT INFORMATION
  Report Type: Other
  Country: NL (occurrence: GR)
  Receive Date: 20231020
  Receipt Date: 20231020
  Transmission Date: 20240110
  Serious: Yes (Life-Threatening, Other)
  Sender: FDA-Public Use
  Company Number: None

PATIENT

DRUGS (10)
  1. PITAVASTATIN [Suspect]
     Active Substance: PITAVASTATIN
     Indication: Hypercholesterolaemia
     Dosage: 5 MG
     Dates: start: 20230113, end: 20230206
  2. PITAVASTATIN [Suspect]
     Active Substance: PITAVASTATIN
     Indication: Coronary artery disease
  3. ATORVASTATIN [Suspect]
     Active Substance: ATORVASTATIN
     Indication: Hypercholesterolaemia
     Dosage: UNK
     Dates: start: 20220707, end: 20220831
  4. ATORVASTATIN [Suspect]
     Active Substance: ATORVASTATIN
     Indication: Coronary artery disease
  5. ATORVASTATIN\EZETIMIBE [Suspect]
     Active Substance: ATORVASTATIN\EZETIMIBE
     Indication: Hypercholesterolaemia
     Dosage: ATORVASTATIN 20MG/ 10MG EZETIMIBE
     Dates: start: 20220901, end: 20220913
  6. ATORVASTATIN\EZETIMIBE [Suspect]
     Active Substance: ATORVASTATIN\EZETIMIBE
     Indication: Coronary artery disease
  7. ROSUVASTATIN [Suspect]
     Active Substance: ROSUVASTATIN
     Indication: Hypercholesterolaemia
     Dosage: 5 MG
     Dates: start: 20220921, end: 20221009
  8. ROSUVASTATIN [Suspect]
     Active Substance: ROSUVASTATIN
     Indication: Coronary artery disease
  9. SIMVASTATIN [Suspect]
     Active Substance: SIMVASTATIN
     Indication: Hypercholesterolaemia
     Dosage: 10 MG
     Dates: start: 20230510, end: 20230525
  10. SIMVASTATIN [Suspect]
     Active Substance: SIMVASTATIN
     Indication: Coronary artery disease

REACTIONS (5)
  - Gamma-glutamyltransferase [Unknown]
  - Aspartate aminotransferase increased [Unknown]
  - Alanine aminotransferase increased [Unknown]
  - Off label use [Unknown]
  - Overdose [Unknown]
